FAERS Safety Report 21738634 (Version 1)
Quarter: 2022Q4

REPORT INFORMATION
  Report Type: Spontaneous
  Country: US (occurrence: US)
  Receive Date: 20221216
  Receipt Date: 20221216
  Transmission Date: 20230113
  Serious: No
  Sender: FDA-Public Use
  Company Number: US-UROGEN PHARMA LTD.-2022-UGN-000118

PATIENT

DRUGS (6)
  1. JELMYTO [Suspect]
     Active Substance: MITOMYCIN
     Indication: Transitional cell cancer of the renal pelvis and ureter
     Dosage: 13 MILLILITER, ONE TIME PER WEEK (INSTILLATION)
     Dates: start: 20220916, end: 20220916
  2. JELMYTO [Suspect]
     Active Substance: MITOMYCIN
     Dosage: 13 MILLILITER, ONE TIME PER WEEK (INSTILLATION)
     Dates: start: 20220923, end: 20220923
  3. JELMYTO [Suspect]
     Active Substance: MITOMYCIN
     Dosage: 13 MILLILITER, ONE TIME PER WEEK (INSTILLATION)
     Dates: start: 20220930, end: 20220930
  4. JELMYTO [Suspect]
     Active Substance: MITOMYCIN
     Dosage: 13 MILLILITER, ONE TIME PER WEEK (INSTILLATION)
     Dates: start: 20221007, end: 20221007
  5. JELMYTO [Suspect]
     Active Substance: MITOMYCIN
     Dosage: 13 MILLILITER, ONE TIME PER WEEK (INSTILLATION)
     Dates: start: 20221014, end: 20221014
  6. JELMYTO [Suspect]
     Active Substance: MITOMYCIN
     Dosage: 13 MILLILITER, ONE TIME PER WEEK (INSTILLATION)
     Dates: start: 20221021, end: 20221021

REACTIONS (10)
  - Pruritus [Recovered/Resolved]
  - Pruritus [Recovered/Resolved]
  - Pruritus [Recovered/Resolved]
  - Pruritus [Recovered/Resolved]
  - Pruritus [Recovered/Resolved]
  - Pyrexia [Recovered/Resolved]
  - Pyrexia [Recovered/Resolved]
  - Pyrexia [Recovered/Resolved]
  - Pyrexia [Recovered/Resolved]
  - Pyrexia [Recovered/Resolved]

NARRATIVE: CASE EVENT DATE: 20220916
